FAERS Safety Report 6812937-4 (Version None)
Quarter: 2010Q3

REPORT INFORMATION
  Report Type: 
  Country: None (occurrence: None)
  Receive Date: 20100701
  Receipt Date: 20100629
  Transmission Date: 20110219
  Serious: Yes (Death, Hospitalization, Other)
  Sender: FDA-Public Use
  Company Number: FR-ABBOTT-10P-056-0653943-00

PATIENT
  Sex: Female

DRUGS (7)
  1. NORVIR [Suspect]
     Indication: HIV INFECTION
     Route: 048
     Dates: start: 20070101
  2. VIDEX [Suspect]
     Indication: HIV INFECTION
     Route: 048
  3. REYATAZ [Suspect]
     Indication: HIV INFECTION
     Route: 048
     Dates: start: 20070101
  4. REBETOL [Suspect]
     Indication: HEPATITIS C
     Route: 048
     Dates: start: 20090930
  5. VIRAFERONPEG [Suspect]
     Indication: HEPATITIS C
     Route: 048
     Dates: start: 20091107
  6. VIREAD [Suspect]
     Indication: HIV INFECTION
     Dosage: 1 DOSAGE FORM
     Route: 048
     Dates: start: 20070101
  7. BACTRIM [Concomitant]
     Indication: PRODUCT USED FOR UNKNOWN INDICATION

REACTIONS (12)
  - ASTHENIA [None]
  - COUGH [None]
  - DIARRHOEA [None]
  - DYSPNOEA EXERTIONAL [None]
  - METABOLIC ACIDOSIS [None]
  - MULTI-ORGAN FAILURE [None]
  - NERVOUSNESS [None]
  - RESPIRATORY ACIDOSIS [None]
  - RESPIRATORY DISORDER [None]
  - RHONCHI [None]
  - TACHYCARDIA [None]
  - TACHYPNOEA [None]
